FAERS Safety Report 19672298 (Version 2)
Quarter: 2021Q3

REPORT INFORMATION
  Report Type: Spontaneous
  Country: US (occurrence: US)
  Receive Date: 20210808
  Receipt Date: 20210921
  Transmission Date: 20211014
  Serious: No
  Sender: FDA-Public Use
  Company Number: US-JNJFOC-20210804605

PATIENT
  Age: 33 Year
  Sex: Female
  Weight: 54.48 kg

DRUGS (1)
  1. REMICADE [Suspect]
     Active Substance: INFLIXIMAB
     Indication: CROHN^S DISEASE
     Route: 042
     Dates: start: 20210730

REACTIONS (7)
  - Poor venous access [Unknown]
  - Infusion related reaction [Unknown]
  - Peripheral swelling [Unknown]
  - Injection site pain [Unknown]
  - Off label use [Unknown]
  - Infusion site extravasation [Unknown]
  - Inappropriate schedule of product administration [Unknown]

NARRATIVE: CASE EVENT DATE: 20210730
